FAERS Safety Report 11595048 (Version 8)
Quarter: 2018Q1

REPORT INFORMATION
  Report Type: Report from Study
  Country: CA (occurrence: CA)
  Receive Date: 20151005
  Receipt Date: 20180112
  Transmission Date: 20180508
  Serious: Yes (Other)
  Sender: FDA-Public Use
  Company Number: CA-ROCHE-1502007

PATIENT
  Age: 45 Year
  Sex: Female
  Weight: 110 kg

DRUGS (3)
  1. ACTEMRA [Suspect]
     Active Substance: TOCILIZUMAB
     Indication: RHEUMATOID ARTHRITIS
     Route: 042
     Dates: start: 20101124
  2. ACTEMRA [Suspect]
     Active Substance: TOCILIZUMAB
     Route: 042
     Dates: start: 20110216
  3. SYNTHROID [Concomitant]
     Active Substance: LEVOTHYROXINE SODIUM

REACTIONS (11)
  - Nasopharyngitis [Not Recovered/Not Resolved]
  - Arthralgia [Recovering/Resolving]
  - Weight decreased [Unknown]
  - Sinusitis [Recovered/Resolved]
  - Body temperature decreased [Unknown]
  - White blood cell count decreased [Unknown]
  - Musculoskeletal stiffness [Unknown]
  - Hepatitis [Unknown]
  - Weight increased [Not Recovered/Not Resolved]
  - Hepatic enzyme increased [Unknown]
  - Joint swelling [Recovering/Resolving]

NARRATIVE: CASE EVENT DATE: 2011
